FAERS Safety Report 25533936 (Version 1)
Quarter: 2025Q3

REPORT INFORMATION
  Report Type: Spontaneous
  Country: US (occurrence: None)
  Receive Date: 20250708
  Receipt Date: 20250708
  Transmission Date: 20251020
  Serious: Yes (unspecified)
  Sender: FDA-CTU
  Company Number: None

PATIENT
  Age: 26 Year
  Sex: Male
  Weight: 113.85 kg

DRUGS (2)
  1. WEGOVY [Suspect]
     Active Substance: SEMAGLUTIDE
     Route: 050
     Dates: start: 2025, end: 20250705
  2. vitamin d 1mcg [Concomitant]

REACTIONS (6)
  - Dry eye [None]
  - Eye pain [None]
  - Asthenopia [None]
  - Photosensitivity reaction [None]
  - Visual impairment [None]
  - Balance disorder [None]

NARRATIVE: CASE EVENT DATE: 20250630
